FAERS Safety Report 24705974 (Version 1)
Quarter: 2024Q4

REPORT INFORMATION
  Report Type: Spontaneous
  Country: CN (occurrence: CN)
  Receive Date: 20241206
  Receipt Date: 20241206
  Transmission Date: 20250114
  Serious: Yes (Hospitalization)
  Sender: BEIGENE
  Company Number: CN-BEIGENE-BGN-2024-019417

PATIENT

DRUGS (12)
  1. TISLELIZUMAB [Suspect]
     Active Substance: TISLELIZUMAB
     Indication: Squamous cell carcinoma of lung
     Dosage: 200 MILLIGRAM
     Route: 041
     Dates: start: 20241108
  2. TISLELIZUMAB [Suspect]
     Active Substance: TISLELIZUMAB
     Indication: Metastases to lung
  3. TISLELIZUMAB [Suspect]
     Active Substance: TISLELIZUMAB
     Indication: Metastases to lymph nodes
  4. CARBOPLATIN [Suspect]
     Active Substance: CARBOPLATIN
     Indication: Squamous cell carcinoma of lung
     Dosage: 35 MILLILITER
     Route: 041
     Dates: start: 20241108
  5. CARBOPLATIN [Suspect]
     Active Substance: CARBOPLATIN
     Indication: Metastases to lung
  6. CARBOPLATIN [Suspect]
     Active Substance: CARBOPLATIN
     Indication: Metastases to lymph nodes
  7. PACLITAXEL [Suspect]
     Active Substance: PACLITAXEL
     Indication: Squamous cell carcinoma of lung
     Dosage: 240 MILLIGRAM
     Route: 041
     Dates: start: 20241108
  8. PACLITAXEL [Suspect]
     Active Substance: PACLITAXEL
     Indication: Metastases to lung
  9. PACLITAXEL [Suspect]
     Active Substance: PACLITAXEL
     Indication: Metastases to lymph nodes
  10. SODIUM CHLORIDE [Concomitant]
     Active Substance: SODIUM CHLORIDE
     Indication: Vehicle solution use
     Dosage: 500 MILLILITER
     Route: 041
     Dates: start: 20241108
  11. SODIUM CHLORIDE [Concomitant]
     Active Substance: SODIUM CHLORIDE
     Dosage: 100 MILLILITER
     Route: 041
     Dates: start: 20241108
  12. DEXTROSE [Concomitant]
     Active Substance: DEXTROSE MONOHYDRATE
     Indication: Vehicle solution use
     Dosage: 400 MILLILITER
     Route: 041
     Dates: start: 20241108

REACTIONS (2)
  - White blood cell count decreased [Recovered/Resolved]
  - Neutrophil count decreased [Recovered/Resolved]

NARRATIVE: CASE EVENT DATE: 20241114
